FAERS Safety Report 4444852-8 (Version None)
Quarter: 2004Q3

REPORT INFORMATION
  Report Type: 
  Country: None (occurrence: None)
  Receive Date: 20040903
  Receipt Date: 20040820
  Transmission Date: 20050211
  Serious: Yes (Other)
  Sender: FDA-Public Use
  Company Number: 2004229855CH

PATIENT
  Age: 36 Year
  Sex: Male

DRUGS (8)
  1. CELEBREX [Suspect]
     Indication: PAIN
     Dosage: 100 MG, QD, ORAL
     Route: 048
     Dates: start: 20040629, end: 20040705
  2. TEMODAL [Suspect]
     Indication: OLIGODENDROGLIOMA
     Dosage: 400 MG, QD, ORAL
     Route: 048
     Dates: start: 20040628, end: 20040702
  3. NEXIUM [Suspect]
     Indication: PROPHYLAXIS
     Dosage: 40 MG, ORAL
     Route: 048
     Dates: end: 20040706
  4. CARBAMAZEPINE [Suspect]
     Dosage: 1200 MG, QD, ORAL
     Route: 048
  5. FRAXIPARINE (HEPARIN-FRACTION, CALCIUM SALT) [Suspect]
     Indication: THROMBOSIS PROPHYLAXIS
     Dosage: 0.16 ML, QD, SUBUCTANEOUS
     Route: 058
  6. SINTROM [Suspect]
     Indication: PULMONARY EMBOLISM
     Dosage: 5-6 MG, QD, ORAL
     Route: 048
     Dates: start: 20040701
  7. TRAMADOL HCL [Concomitant]
  8. CALCIUM WITH VITAMIN D (ERGOCALCIFEROL, CALCIUM PHOSPHATE, CALCIUM SOD [Concomitant]

REACTIONS (4)
  - DRUG INTERACTION [None]
  - HEPATOCELLULAR DAMAGE [None]
  - PULMONARY EMBOLISM [None]
  - THERAPY NON-RESPONDER [None]
